FAERS Safety Report 16023012 (Version 4)
Quarter: 2020Q2

REPORT INFORMATION
  Report Type: Spontaneous
  Country: GB (occurrence: GB)
  Receive Date: 20190301
  Receipt Date: 20200408
  Transmission Date: 20200713
  Serious: Yes (Hospitalization, Other)
  Sender: FDA-Public Use
  Company Number: GB-BIOVITRUM-2019GB0383

PATIENT
  Sex: Male
  Weight: 2 kg

DRUGS (8)
  1. ANTIFUNGALS [Concomitant]
     Active Substance: UNSPECIFIED INGREDIENT
     Route: 064
  2. IMMUNGLOBULIN [Concomitant]
     Active Substance: HUMAN IMMUNOGLOBULIN G
     Indication: HAEMOPHAGOCYTIC LYMPHOHISTIOCYTOSIS
     Route: 064
     Dates: start: 20180501, end: 20180515
  3. ANTIVIRAL NOS [Concomitant]
     Active Substance: UNSPECIFIED INGREDIENT
     Route: 064
  4. DEXAMETHASONE. [Concomitant]
     Active Substance: DEXAMETHASONE
     Indication: HAEMOPHAGOCYTIC LYMPHOHISTIOCYTOSIS
     Dosage: 12 MG DECREASE GRADUAL
     Route: 064
     Dates: start: 20180430, end: 20180801
  5. KINERET [Suspect]
     Active Substance: ANAKINRA
     Indication: HAEMOPHAGOCYTIC LYMPHOHISTIOCYTOSIS
     Route: 064
     Dates: start: 20180523, end: 20180801
  6. POLYANTIBIOTIC [Concomitant]
     Indication: SEPSIS
     Route: 064
     Dates: start: 20180412, end: 20180430
  7. METHYLPREDNISOLONE. [Concomitant]
     Active Substance: METHYLPREDNISOLONE
     Indication: HAEMOPHAGOCYTIC LYMPHOHISTIOCYTOSIS
     Route: 064
     Dates: start: 20180501, end: 20180515
  8. KINERET [Suspect]
     Active Substance: ANAKINRA
     Indication: HAEMOPHAGOCYTIC LYMPHOHISTIOCYTOSIS
     Route: 064
     Dates: start: 20180513, end: 20180522

REACTIONS (4)
  - Hydrops foetalis [Unknown]
  - Small for dates baby [Unknown]
  - Foetal anaemia [Recovered/Resolved]
  - Foetal monitoring abnormal [Unknown]

NARRATIVE: CASE EVENT DATE: 20180618
